FAERS Safety Report 12333960 (Version 1)
Quarter: 2016Q2

REPORT INFORMATION
  Report Type: Spontaneous
  Country: US (occurrence: US)
  Receive Date: 20160504
  Receipt Date: 20160504
  Transmission Date: 20160815
  Serious: No
  Sender: FDA-Public Use
  Company Number: US-ROCHE-ITM201503IM011360

PATIENT
  Age: 73 Year
  Sex: Male
  Weight: 87.17 kg

DRUGS (4)
  1. MOXIFLOXACIN. [Concomitant]
     Active Substance: MOXIFLOXACIN
  2. LEVAQUIN [Concomitant]
     Active Substance: LEVOFLOXACIN
  3. ESBRIET [Suspect]
     Active Substance: PIRFENIDONE
     Indication: IDIOPATHIC PULMONARY FIBROSIS
     Route: 048
     Dates: start: 20150126
  4. ESBRIET [Suspect]
     Active Substance: PIRFENIDONE
     Route: 048
     Dates: start: 20150127

REACTIONS (9)
  - Diarrhoea [Not Recovered/Not Resolved]
  - Epistaxis [Not Recovered/Not Resolved]
  - Fatigue [Not Recovered/Not Resolved]
  - Pneumonia [Recovered/Resolved]
  - Skin burning sensation [Unknown]
  - Fatigue [Unknown]
  - Dry skin [Unknown]
  - Heart rate increased [Unknown]
  - Pruritus [Unknown]

NARRATIVE: CASE EVENT DATE: 20150223
